FAERS Safety Report 25668853 (Version 2)
Quarter: 2025Q3

REPORT INFORMATION
  Report Type: Spontaneous
  Country: US (occurrence: US)
  Receive Date: 20250812
  Receipt Date: 20250924
  Transmission Date: 20251021
  Serious: No
  Sender: MICRO LABS
  Company Number: US-862174955-ML2025-03957

PATIENT
  Age: 78 Year
  Sex: Female
  Weight: 63 kg

DRUGS (4)
  1. DORZOLAMIDE HYDROCHLORIDE OPHTHALMIC SOLUTION [Suspect]
     Active Substance: DORZOLAMIDE HYDROCHLORIDE
     Indication: Glaucoma
     Dosage: DOSE: ONE DROP IN EACH EYE?FREQUENCY: TWICE DAILY, MORNING AND EVENING
     Route: 047
     Dates: start: 202507
  2. MELOXICAM [Concomitant]
     Active Substance: MELOXICAM
     Indication: Product used for unknown indication
  3. ESTROGENS [Concomitant]
     Active Substance: ESTROGENS
     Indication: Product used for unknown indication
  4. PROGESTERONE [Concomitant]
     Active Substance: PROGESTERONE
     Indication: Product used for unknown indication

REACTIONS (4)
  - Vision blurred [Recovered/Resolved]
  - Eye pain [Unknown]
  - Product dose omission issue [Unknown]
  - Product container issue [Unknown]

NARRATIVE: CASE EVENT DATE: 20250701
